FAERS Safety Report 4967635-9 (Version None)
Quarter: 2006Q2

REPORT INFORMATION
  Report Type: 
  Country: None (occurrence: None)
  Receive Date: 20060410
  Receipt Date: 20060203
  Transmission Date: 20061013
  Serious: No
  Sender: FDA-Public Use
  Company Number: FR-JNJFOC-20060101684

PATIENT
  Age: 29 Year
  Sex: Female

DRUGS (5)
  1. SUFENTA [Suspect]
     Indication: GENERAL ANAESTHESIA
     Dosage: DURATION: A FEW HOURS
     Route: 065
  2. TOPALGIC [Suspect]
     Indication: DRUG USE FOR UNKNOWN INDICATION
     Dosage: DURATION: A FEW HOURS
     Route: 065
  3. THIOPENTAL SODIUM [Suspect]
     Indication: DRUG USE FOR UNKNOWN INDICATION
     Dosage: DURATION: A FEW HOURS
     Route: 065
  4. NIMBEX [Suspect]
     Indication: DRUG USE FOR UNKNOWN INDICATION
     Dosage: DURATION: A FEW HOURS
     Route: 065
  5. PERFALGAN [Suspect]
     Indication: DRUG USE FOR UNKNOWN INDICATION
     Dosage: DURATION: A FEW HOURS
     Route: 065

REACTIONS (10)
  - ABORTION INDUCED [None]
  - COARCTATION OF THE AORTA [None]
  - CONGENITAL HAND MALFORMATION [None]
  - DRUG EXPOSURE DURING PREGNANCY [None]
  - DUODENAL ATRESIA [None]
  - KIDNEY MALFORMATION [None]
  - MULTIPLE CONGENITAL ABNORMALITIES [None]
  - OESOPHAGEAL ATRESIA [None]
  - OESOPHAGOBRONCHIAL FISTULA [None]
  - PERSISTENT LEFT SUPERIOR VENA CAVA [None]
